FAERS Safety Report 20535784 (Version 1)
Quarter: 2022Q1

REPORT INFORMATION
  Report Type: Spontaneous
  Country: SE (occurrence: SE)
  Receive Date: 20220302
  Receipt Date: 20220302
  Transmission Date: 20220423
  Serious: Yes (Death, Other)
  Sender: FDA-Public Use
  Company Number: SE-BAYER-2021A248168

PATIENT
  Sex: Female

DRUGS (1)
  1. XARELTO [Suspect]
     Active Substance: RIVAROXABAN
     Indication: Product used for unknown indication
     Dosage: UNK
     Route: 048

REACTIONS (7)
  - Respiratory failure [Fatal]
  - Pulmonary haemorrhage [Fatal]
  - Lung adenocarcinoma [Unknown]
  - Thrombocytopenia [Unknown]
  - Haemoptysis [Fatal]
  - Dyspnoea [Fatal]
  - Hypoxia [Fatal]
